FAERS Safety Report 8956860 (Version 1)
Quarter: 2012Q4

REPORT INFORMATION
  Report Type: Spontaneous
  Country: US (occurrence: None)
  Receive Date: 20121205
  Receipt Date: 20121205
  Transmission Date: 20130627
  Serious: Yes (Other)
  Sender: FDA-Public Use
  Company Number: None

PATIENT
  Sex: Female

DRUGS (1)
  1. PIOGLITAZONE [Suspect]
     Indication: TYPE II DIABETES MELLITUS
     Route: 048
     Dates: start: 201207, end: 201211

REACTIONS (2)
  - Abdominal pain upper [None]
  - Diarrhoea [None]
